FAERS Safety Report 6617760-1 (Version None)
Quarter: 2010Q1

REPORT INFORMATION
  Report Type: 
  Country: None (occurrence: None)
  Receive Date: 20100308
  Receipt Date: 20100301
  Transmission Date: 20100710
  Serious: Yes (Death, Hospitalization)
  Sender: FDA-Public Use
  Company Number: PHHY2010MX08249

PATIENT
  Age: 92 Year
  Sex: Female

DRUGS (4)
  1. STALEVO 100 [Suspect]
     Indication: PARKINSON'S DISEASE
     Dosage: 2 TABLETS (50/12.5/200 MG) PER DAY
     Route: 048
     Dates: start: 20060301, end: 20100105
  2. MICARDIS [Concomitant]
     Indication: HYPERTENSION
     Dosage: 1 TABLET (40 MG) PER DAY
  3. AKINETON [Concomitant]
     Indication: PARKINSON'S DISEASE
     Dosage: 1 TABLET (4 MG) PER DAY
  4. LEXAPRO [Concomitant]
     Indication: DEPRESSION
     Dosage: 0.5 TAB PER DAY

REACTIONS (6)
  - BREATH SOUNDS ABNORMAL [None]
  - DECREASED APPETITE [None]
  - DYSPNOEA [None]
  - FATIGUE [None]
  - PNEUMONIA BACTERIAL [None]
  - RESPIRATORY ARREST [None]
